FAERS Safety Report 5730112-1 (Version None)
Quarter: 2008Q2

REPORT INFORMATION
  Report Type: 
  Country: None (occurrence: None)
  Receive Date: 20080507
  Receipt Date: 20080428
  Transmission Date: 20081010
  Serious: Yes (Other)
  Sender: FDA-Public Use
  Company Number: PHNU2008DE01667

PATIENT
  Age: 82 Year
  Sex: Female

DRUGS (2)
  1. EXELON [Suspect]
     Indication: DEMENTIA
     Dosage: 4.6 MG/24 HR PATCH
     Route: 062
     Dates: start: 20080401, end: 20080401
  2. EXELON [Suspect]
     Dosage: TWO 4.6 MG PATCHES AT ONCE
     Route: 062
     Dates: start: 20080401, end: 20080401

REACTIONS (7)
  - CONFUSIONAL STATE [None]
  - DEHYDRATION [None]
  - DISORIENTATION [None]
  - FALL [None]
  - INCORRECT DRUG ADMINISTRATION RATE [None]
  - JOINT STIFFNESS [None]
  - TREMOR [None]
